FAERS Safety Report 10155510 (Version 1)
Quarter: 2014Q2

REPORT INFORMATION
  Report Type: Spontaneous
  Country: US (occurrence: US)
  Receive Date: 20140506
  Receipt Date: 20140506
  Transmission Date: 20141212
  Serious: No
  Sender: FDA-Public Use
  Company Number: US-PFIZER INC-2014122841

PATIENT
  Sex: Female

DRUGS (1)
  1. DIFLUCAN [Suspect]
     Dosage: UNK
     Dates: start: 201404

REACTIONS (3)
  - Swelling face [Unknown]
  - Local swelling [Unknown]
  - Mouth swelling [Unknown]
